FAERS Safety Report 21090931 (Version 1)
Quarter: 2022Q3

REPORT INFORMATION
  Report Type: Spontaneous
  Country: NL (occurrence: NL)
  Receive Date: 20220716
  Receipt Date: 20220716
  Transmission Date: 20221026
  Serious: Yes (Hospitalization)
  Sender: FDA-Public Use
  Company Number: None

PATIENT
  Sex: Female
  Weight: 90 kg

DRUGS (1)
  1. HYDROCHLOROTHIAZIDE\TRIAMTERENE [Suspect]
     Active Substance: HYDROCHLOROTHIAZIDE\TRIAMTERENE
     Indication: Product used for unknown indication
     Dosage: .5 DOSAGE FORMS DAILY; 1/2 A DAY,TRIAMTERENE/HYDROCHLOROTHIAZIDE TABLET 50/25MG / BRAND NAME NOT SPE
     Dates: start: 202101, end: 20220602

REACTIONS (3)
  - Hypokalaemia [Recovered/Resolved]
  - Therapeutic response unexpected [Unknown]
  - Myalgia [Unknown]
